FAERS Safety Report 17197352 (Version 4)
Quarter: 2020Q1

REPORT INFORMATION
  Report Type: Spontaneous
  Country: US (occurrence: US)
  Receive Date: 20191224
  Receipt Date: 20200323
  Transmission Date: 20200409
  Serious: Yes (Hospitalization, Other)
  Sender: FDA-Public Use
  Company Number: US-MALLINCKRODT-T201906567

PATIENT
  Age: 76 Year
  Sex: Female
  Weight: 75 kg

DRUGS (2)
  1. H.P. ACTHAR [Suspect]
     Active Substance: CORTICOTROPIN
     Indication: DERMATOMYOSITIS
  2. H.P. ACTHAR [Suspect]
     Active Substance: CORTICOTROPIN
     Indication: POLYMYOSITIS
     Dosage: 80 UNITS (1ML), TWO TIMES A WEEK AS DIRECTED
     Route: 058
     Dates: start: 20190827

REACTIONS (10)
  - Glaucoma [Unknown]
  - Stent placement [Unknown]
  - Sensitivity to weather change [Unknown]
  - Eye pain [Unknown]
  - Arthritis [Unknown]
  - Coronary artery occlusion [Unknown]
  - Pain [Not Recovered/Not Resolved]
  - Malaise [Unknown]
  - Chest pain [Unknown]
  - Periorbital swelling [Unknown]

NARRATIVE: CASE EVENT DATE: 2019
